FAERS Safety Report 12124943 (Version 2)
Quarter: 2016Q1

REPORT INFORMATION
  Report Type: Spontaneous
  Country: US (occurrence: US)
  Receive Date: 20160229
  Receipt Date: 20160321
  Transmission Date: 20160526
  Serious: No
  Sender: FDA-Public Use
  Company Number: US-VIIV HEALTHCARE LIMITED-US2016026434

PATIENT
  Age: 36 Year
  Sex: Female

DRUGS (3)
  1. INH [Concomitant]
     Active Substance: ISONIAZID
     Dosage: UNK
     Dates: start: 20160106
  2. TRIUMEQ [Suspect]
     Active Substance: ABACAVIR SULFATE\DOLUTEGRAVIR SODIUM\LAMIVUDINE
     Indication: HIV INFECTION
     Dosage: 1 DF, QD
     Route: 048
     Dates: start: 20150415, end: 20150615
  3. INH [Concomitant]
     Active Substance: ISONIAZID
     Dosage: 300 MG, U
     Dates: start: 20150305

REACTIONS (2)
  - Transaminases increased [Recovered/Resolved]
  - Hepatic enzyme increased [Recovered/Resolved]

NARRATIVE: CASE EVENT DATE: 20150610
